FAERS Safety Report 7294349-5 (Version None)
Quarter: 2011Q1

REPORT INFORMATION
  Report Type: 
  Country: None (occurrence: None)
  Receive Date: 20110215
  Receipt Date: 20110202
  Transmission Date: 20110831
  Serious: Yes (Hospitalization)
  Sender: FDA-Public Use
  Company Number: FR-AMGEN-FRASP2011006412

PATIENT
  Age: 86 Year
  Sex: Female

DRUGS (6)
  1. ARANESP [Suspect]
     Dosage: 300 A?G, QWK
     Dates: start: 20090709, end: 20091001
  2. SPECIAFOLDINE [Concomitant]
     Indication: REFRACTORY ANAEMIA WITH AN EXCESS OF BLASTS
     Dosage: UNK
     Route: 048
  3. TARDYFERON                         /00023503/ [Concomitant]
     Indication: REFRACTORY ANAEMIA WITH AN EXCESS OF BLASTS
     Dosage: UNK
     Route: 048
  4. FIXICAL VITAMINE D3 [Concomitant]
     Indication: OSTEOPOROSIS
     Dosage: UNK
     Route: 048
  5. COTAREG [Concomitant]
     Indication: HYPERTENSION
     Dosage: UNK
     Route: 048
  6. ARANESP [Suspect]
     Indication: REFRACTORY ANAEMIA WITH AN EXCESS OF BLASTS
     Dosage: 500 A?G, Q2WK
     Route: 058
     Dates: start: 20091126, end: 20101122

REACTIONS (2)
  - LOCALISED INFECTION [None]
  - ANAEMIA [None]
